FAERS Safety Report 9197536 (Version 2)
Quarter: 2013Q2

REPORT INFORMATION
  Report Type: Report from Study
  Country: JP (occurrence: JP)
  Receive Date: 20130328
  Receipt Date: 20130626
  Transmission Date: 20140414
  Serious: Yes (Other)
  Sender: FDA-Public Use
  Company Number: JP-GLAXOSMITHKLINE-B0874308A

PATIENT
  Age: 41 Year
  Sex: Female
  Weight: 74 kg

DRUGS (4)
  1. TYKERB [Suspect]
     Indication: BREAST CANCER
     Route: 048
     Dates: start: 20100722
  2. XELODA [Suspect]
     Indication: PRODUCT USED FOR UNKNOWN INDICATION
     Route: 048
     Dates: start: 20100722, end: 20110526
  3. ALESION [Concomitant]
     Indication: RHINITIS ALLERGIC
     Route: 048
     Dates: start: 20070501, end: 20100415
  4. PYDOXAL [Concomitant]
     Indication: PROPHYLAXIS
     Route: 048
     Dates: start: 20100722, end: 20110721

REACTIONS (4)
  - Diarrhoea [Recovering/Resolving]
  - Rash [Recovering/Resolving]
  - Gastric ulcer [Recovering/Resolving]
  - Abdominal pain upper [Not Recovered/Not Resolved]
